FAERS Safety Report 16908279 (Version 1)
Quarter: 2019Q4

REPORT INFORMATION
  Report Type: Spontaneous
  Country: US (occurrence: US)
  Receive Date: 20191011
  Receipt Date: 20191011
  Transmission Date: 20200122
  Serious: No
  Sender: FDA-Public Use
  Company Number: US-APOTEX-2019AP022300

PATIENT
  Age: 21 Year
  Sex: Male

DRUGS (4)
  1. BUPROPION HYDROCHLORIDE. [Suspect]
     Active Substance: BUPROPION HYDROCHLORIDE
     Indication: ENERGY INCREASED
     Dosage: 100 MG, Q.AM (ONCE A DAY)
     Route: 048
     Dates: start: 20190910, end: 20190913
  2. ELAVIL [Concomitant]
     Active Substance: AMITRIPTYLINE HYDROCHLORIDE
     Indication: CYSTITIS INTERSTITIAL
     Dosage: 25 MG, (ONCE IN THE EVENING)
     Route: 065
     Dates: start: 201712
  3. MESALAMINE. [Concomitant]
     Active Substance: MESALAMINE
     Indication: IRRITABLE BOWEL SYNDROME
     Dosage: 1.2 MG, BID (ONCE IN MORNING AND ONCE IN THE EVENING)
     Route: 065
     Dates: start: 201907
  4. HUMIRA [Concomitant]
     Active Substance: ADALIMUMAB
     Indication: JUVENILE IDIOPATHIC ARTHRITIS
     Dosage: 40 MG, UNK (EVERY TWO WEEKS)
     Route: 065
     Dates: start: 201709

REACTIONS (2)
  - Bladder pain [Recovering/Resolving]
  - Pelvic discomfort [Recovering/Resolving]

NARRATIVE: CASE EVENT DATE: 20190912
